FAERS Safety Report 17839218 (Version 1)
Quarter: 2020Q2

REPORT INFORMATION
  Report Type: Spontaneous
  Country: US (occurrence: US)
  Receive Date: 20200528
  Receipt Date: 20200528
  Transmission Date: 20200714
  Serious: No
  Sender: FDA-Public Use
  Company Number: None

PATIENT
  Age: 77 Year
  Sex: Female
  Weight: 95.25 kg

DRUGS (1)
  1. OLUMIANT [Suspect]
     Active Substance: BARICITINIB
     Indication: RHEUMATOID ARTHRITIS
     Dosage: ?          OTHER DOSE:1 TABLET BY MOUTH;OTHER ROUTE:AS DIRECTED?

REACTIONS (4)
  - Mental impairment [None]
  - Ulcer [None]
  - Loss of consciousness [None]
  - Rectal haemorrhage [None]
